FAERS Safety Report 17729348 (Version 1)
Quarter: 2020Q2

REPORT INFORMATION
  Report Type: Spontaneous
  Country: US (occurrence: US)
  Receive Date: 20200429
  Receipt Date: 20200429
  Transmission Date: 20200714
  Serious: Yes (Disabling)
  Sender: FDA-Public Use
  Company Number: None

PATIENT
  Age: 56 Year
  Sex: Female
  Weight: 60.33 kg

DRUGS (7)
  1. ZEBETA [Concomitant]
     Active Substance: BISOPROLOL FUMARATE
  2. VOLTAREN [Concomitant]
     Active Substance: DICLOFENAC SODIUM
  3. AMBIEN PRN [Concomitant]
  4. DOXYLAMINE SUCCINATE TABS [Concomitant]
  5. ESTRACE [Concomitant]
     Active Substance: ESTRADIOL
  6. LIDODERM [Concomitant]
     Active Substance: LIDOCAINE
  7. ASCLERA [Suspect]
     Active Substance: POLIDOCANOL
     Indication: SPIDER VEIN

REACTIONS (4)
  - Meniscus injury [None]
  - Arthralgia [None]
  - Tendonitis [None]
  - Burning sensation [None]

NARRATIVE: CASE EVENT DATE: 20190905
